FAERS Safety Report 23831141 (Version 2)
Quarter: 2024Q2

REPORT INFORMATION
  Report Type: Spontaneous
  Country: AU (occurrence: AU)
  Receive Date: 20240508
  Receipt Date: 20240514
  Transmission Date: 20240716
  Serious: Yes (Other)
  Sender: FDA-Public Use
  Company Number: AU-CHEPLA-C20181244

PATIENT

DRUGS (2)
  1. DOXYCYCLINE HYCLATE [Suspect]
     Active Substance: DOXYCYCLINE HYCLATE
     Indication: Malaria prophylaxis
     Dosage: UNK UNK, 1X/DAY
  2. MEFLOQUINE [Suspect]
     Active Substance: MEFLOQUINE
     Indication: Malaria prophylaxis
     Dosage: UNK, WEEKLY

REACTIONS (5)
  - Major depression [Not Recovered/Not Resolved]
  - Anger [Unknown]
  - Balance disorder [Unknown]
  - Chest discomfort [Unknown]
  - Vertigo [Unknown]
